FAERS Safety Report 9636036 (Version 2)
Quarter: 2013Q4

REPORT INFORMATION
  Report Type: Spontaneous
  Country: JP (occurrence: JP)
  Receive Date: 20131021
  Receipt Date: 20131218
  Transmission Date: 20140711
  Serious: Yes (Death, Other)
  Sender: FDA-Public Use
  Company Number: PHHY2013JP118087

PATIENT
  Age: 69 Year
  Sex: Male
  Weight: 48 kg

DRUGS (7)
  1. EXELON PATCH [Suspect]
     Indication: DEMENTIA ALZHEIMER^S TYPE
     Dosage: 4.5 MG, DAILY
     Route: 062
     Dates: start: 20120323
  2. EXELON PATCH [Suspect]
     Dosage: 9.5 MG, DAILY
     Route: 062
     Dates: start: 20120413
  3. EXELON PATCH [Suspect]
     Dosage: 13.5 MG, DAILY
     Route: 062
     Dates: start: 20120511
  4. ADALAT [Concomitant]
     Dosage: UNK UKN, UNK
     Route: 048
     Dates: start: 2011
  5. FLUITRAN [Concomitant]
     Dosage: UNK UKN, UNK
     Route: 048
  6. OLMETEC [Concomitant]
     Dosage: UNK UKN, UNK
     Route: 048
  7. WARFARIN [Concomitant]
     Dosage: 4 MG, UNK
     Route: 048

REACTIONS (5)
  - Death [Fatal]
  - Nervous system disorder [Unknown]
  - Melaena [Unknown]
  - Blood potassium decreased [Unknown]
  - Vascular fragility [Unknown]
